FAERS Safety Report 6264189-4 (Version None)
Quarter: 2009Q3

REPORT INFORMATION
  Report Type: 
  Country: None (occurrence: None)
  Receive Date: 20090708
  Receipt Date: 20090624
  Transmission Date: 20100115
  Serious: Yes (Hospitalization)
  Sender: FDA-Public Use
  Company Number: 2009-02530

PATIENT
  Age: 46 Year
  Sex: Male
  Weight: 64 kg

DRUGS (4)
  1. VELCADE [Suspect]
     Indication: MULTIPLE MYELOMA
     Dosage: 2.21 MG, INTRAVENOUS
     Route: 042
     Dates: start: 20090605, end: 20090615
  2. TARDYFERON (FERROUS SULFATE) [Concomitant]
  3. ALLOPURINOL [Concomitant]
  4. PIROMIDIC ACID (PIROMIDIC ACID) [Concomitant]

REACTIONS (7)
  - ANAEMIA [None]
  - CEREBROVASCULAR DISORDER [None]
  - DYSPHAGIA [None]
  - ENCEPHALOPATHY [None]
  - HYPERTHERMIA [None]
  - POLYNEUROPATHY [None]
  - THROMBOCYTOPENIA [None]
